FAERS Safety Report 25035550 (Version 1)
Quarter: 2025Q1

REPORT INFORMATION
  Report Type: Spontaneous
  Country: CA (occurrence: CA)
  Receive Date: 20250304
  Receipt Date: 20250304
  Transmission Date: 20250409
  Serious: Yes (Hospitalization)
  Sender: ROCHE
  Company Number: CA-002147023-NVSC2025CA034028

PATIENT
  Age: 66 Year
  Sex: Female

DRUGS (1)
  1. OMALIZUMAB [Suspect]
     Active Substance: OMALIZUMAB
     Indication: Asthma
     Route: 065

REACTIONS (5)
  - Asthma [Unknown]
  - Dyspnoea [Unknown]
  - Pneumonia [Unknown]
  - Productive cough [Unknown]
  - Pulmonary oedema [Unknown]
